FAERS Safety Report 8536970-X (Version None)
Quarter: 2012Q3

REPORT INFORMATION
  Report Type: 
  Country: None (occurrence: None)
  Receive Date: 20120725
  Receipt Date: 20120710
  Transmission Date: 20120928
  Serious: Yes (Other)
  Sender: FDA-Public Use
  Company Number: DE-FRI-1000037210

PATIENT
  Age: 57 Year
  Sex: Male
  Weight: 97 kg

DRUGS (12)
  1. TROMPHYLLIN RETARD [Concomitant]
     Indication: CHRONIC OBSTRUCTIVE PULMONARY DISEASE
     Dates: start: 20020114
  2. METFORMIN HYDROCHLORIDE [Concomitant]
     Indication: DIABETES MELLITUS
     Dates: start: 20100101, end: 20110815
  3. TROMPHYLLIN RETARD [Concomitant]
     Indication: ASTHMA
  4. VENLAFAXINE [Concomitant]
     Indication: DEPRESSION
     Dates: start: 20070320
  5. ROFLUMILAST [Suspect]
     Indication: CHRONIC OBSTRUCTIVE PULMONARY DISEASE
     Route: 048
     Dates: start: 20110207, end: 20120120
  6. SIMVASTATIN [Concomitant]
     Dates: start: 20071030, end: 20110815
  7. DICLOFENAC [Concomitant]
     Indication: PAIN
  8. SYMBICORT [Concomitant]
     Indication: ASTHMA
  9. IRBESARTAN AND HYDROCHLOROTHIAZIDE [Concomitant]
     Indication: HYPERTENSION
     Dates: start: 20070320, end: 20110815
  10. DIPYRONE TAB [Concomitant]
     Indication: PAIN
  11. GASTRIC BANDING [Concomitant]
     Dates: start: 20110728
  12. SYMBICORT [Concomitant]
     Indication: CHRONIC OBSTRUCTIVE PULMONARY DISEASE
     Dates: start: 20040101

REACTIONS (1)
  - NON-SMALL CELL LUNG CANCER [None]
